FAERS Safety Report 17472174 (Version 1)
Quarter: 2020Q1

REPORT INFORMATION
  Report Type: Spontaneous
  Country: US (occurrence: US)
  Receive Date: 20200228
  Receipt Date: 20200228
  Transmission Date: 20200409
  Serious: Yes (Death, Other)
  Sender: FDA-Public Use
  Company Number: US-GILEAD-2020-0452694

PATIENT
  Age: 56 Year
  Sex: Male

DRUGS (12)
  1. LANTUS [Concomitant]
     Active Substance: INSULIN GLARGINE
  2. BENZONATATE. [Concomitant]
     Active Substance: BENZONATATE
  3. GONITRO [Concomitant]
     Active Substance: NITROGLYCERIN
  4. METOPROLOL TARTRATE. [Concomitant]
     Active Substance: METOPROLOL TARTRATE
  5. FUROSEMIDE. [Concomitant]
     Active Substance: FUROSEMIDE
  6. FENOFIBRATE. [Concomitant]
     Active Substance: FENOFIBRATE
  7. PROTONIX [OMEPRAZOLE] [Concomitant]
     Active Substance: OMEPRAZOLE
  8. SPIRONOLACTONE. [Concomitant]
     Active Substance: SPIRONOLACTONE
  9. CLOPIDOGREL [Concomitant]
     Active Substance: CLOPIDOGREL BISULFATE
  10. POTASSIUM [Concomitant]
     Active Substance: POTASSIUM
  11. SOFOSBUVIR;VELPATASVIR [Suspect]
     Active Substance: SOFOSBUVIR\VELPATASVIR
     Indication: CHRONIC HEPATITIS C
     Dosage: 1 DOSAGE FORM, QD
     Route: 048
     Dates: start: 202001
  12. LORATADINE. [Concomitant]
     Active Substance: LORATADINE

REACTIONS (1)
  - Death [Fatal]

NARRATIVE: CASE EVENT DATE: 20200216
